FAERS Safety Report 7764453-3 (Version None)
Quarter: 2011Q3

REPORT INFORMATION
  Report Type: 
  Country: None (occurrence: None)
  Receive Date: 20110919
  Receipt Date: 20110909
  Transmission Date: 20111222
  Serious: Yes (Other)
  Sender: FDA-Public Use
  Company Number: 2011MA013503

PATIENT
  Age: 60 Year
  Sex: Female

DRUGS (5)
  1. DICLOFENAC [Concomitant]
  2. CLARITHROMYCIN [Concomitant]
  3. ERYTHROMYCIN [Concomitant]
  4. DOXYCYCLINE [Concomitant]
  5. NAPROXEN [Suspect]
     Dates: start: 20110728

REACTIONS (2)
  - HEADACHE [None]
  - RASH [None]
